FAERS Safety Report 5866860-2 (Version None)
Quarter: 2008Q3

REPORT INFORMATION
  Report Type: 
  Country: None (occurrence: None)
  Receive Date: 20080902
  Receipt Date: 20080822
  Transmission Date: 20090109
  Serious: Yes (Disabling)
  Sender: FDA-Public Use
  Company Number: US-ROCHE-449321

PATIENT
  Sex: Male
  Weight: 102.1 kg

DRUGS (12)
  1. PEGASYS [Suspect]
     Indication: HEPATITIS C
     Dosage: ROUTE REPORTED AS INJECTABLE
     Route: 065
     Dates: start: 20050701, end: 20051101
  2. PEGASYS [Suspect]
     Dosage: FORM:PFS
     Route: 065
     Dates: start: 20080822
  3. COPEGUS [Suspect]
     Indication: HEPATITIS C
     Route: 065
     Dates: start: 20080822
  4. PNEUMOVAX 23 [Suspect]
     Indication: DRUG USE FOR UNKNOWN INDICATION
     Dosage: ROUTE REPORTED AS INJECTABLE.
     Route: 050
     Dates: start: 20051031, end: 20051031
  5. RIBAVIRIN [Concomitant]
     Route: 048
     Dates: start: 20050916, end: 20060120
  6. BUTALBITAL [Concomitant]
  7. VALIUM [Concomitant]
  8. ELAVIL [Concomitant]
     Indication: ANTIDEPRESSANT THERAPY
     Dates: start: 20050901, end: 20060101
  9. INFLUENZA VACCINE [Concomitant]
     Dosage: DRUG REPORTED AS INFLUENZA VACCINE NOS. ROUTE REPORTED AS INJECTABLE.
     Route: 050
     Dates: start: 20051001, end: 20051001
  10. BARBITURATES [Concomitant]
  11. 1 CONCOMITANT UNSPECIFIED DRUG [Concomitant]
     Dosage: REPORTED AS 'FLORINAL'
  12. 1 CONCOMITANT UNSPECIFIED DRUG [Concomitant]
     Dosage: REPORTED AS 'ANTISEIZURE MEDICATIONS'

REACTIONS (9)
  - ASTHENIA [None]
  - BONE DISORDER [None]
  - CONTUSION [None]
  - MASS [None]
  - MENTAL IMPAIRMENT [None]
  - NEUROPATHY PERIPHERAL [None]
  - SENSATION OF HEAVINESS [None]
  - VIRAL LOAD INCREASED [None]
  - VISUAL IMPAIRMENT [None]
